FAERS Safety Report 24653635 (Version 5)
Quarter: 2025Q2

REPORT INFORMATION
  Report Type: Spontaneous
  Country: US (occurrence: US)
  Receive Date: 20241122
  Receipt Date: 20250606
  Transmission Date: 20250717
  Serious: No
  Sender: VERTEX
  Company Number: US-VERTEX PHARMACEUTICALS-2024-018134

PATIENT

DRUGS (1)
  1. TRIKAFTA [Suspect]
     Active Substance: ELEXACAFTOR\IVACAFTOR\TEZACAFTOR
     Indication: Cystic fibrosis
     Route: 048

REACTIONS (7)
  - Aphasia [Unknown]
  - Insomnia [Unknown]
  - COVID-19 [Unknown]
  - Flatulence [Unknown]
  - Nasopharyngitis [Unknown]
  - Abdominal pain [Recovering/Resolving]
  - Frequent bowel movements [Unknown]
